FAERS Safety Report 20472124 (Version 1)
Quarter: 2022Q1

REPORT INFORMATION
  Report Type: Other
  Country: GB (occurrence: GB)
  Receive Date: 20220214
  Receipt Date: 20220214
  Transmission Date: 20220423
  Serious: Yes (Hospitalization)
  Sender: FDA-Public Use
  Company Number: GB-CELLTRION INC.-2022GB001413

PATIENT

DRUGS (8)
  1. RITUXIMAB [Suspect]
     Active Substance: RITUXIMAB
     Indication: Ill-defined disorder
     Dosage: DAY 10 POST CYCLE 1 OF R-CVP CHEMOTHERAPY
     Route: 042
     Dates: start: 20220125, end: 20220125
  2. RITUXIMAB [Suspect]
     Active Substance: RITUXIMAB
     Indication: Splenic marginal zone lymphoma
  3. CYCLOPHOSPHAMIDE [Suspect]
     Active Substance: CYCLOPHOSPHAMIDE
     Indication: Ill-defined disorder
     Dosage: DAY 10 POST CYCLE 1 OF R-CVP CHEMOTHERAPY
     Route: 042
     Dates: start: 20220125, end: 20220125
  4. CYCLOPHOSPHAMIDE [Suspect]
     Active Substance: CYCLOPHOSPHAMIDE
     Indication: Splenic marginal zone lymphoma
  5. PREDNISOLONE [Suspect]
     Active Substance: PREDNISOLONE
     Indication: Ill-defined disorder
     Dosage: DAY 10 POST CYCLE 1 OF R-CVP CHEMOTHERAPY
     Route: 048
     Dates: start: 20220125, end: 20220129
  6. PREDNISOLONE [Suspect]
     Active Substance: PREDNISOLONE
     Indication: Splenic marginal zone lymphoma
  7. VINCRISTINE [Suspect]
     Active Substance: VINCRISTINE
     Indication: Ill-defined disorder
     Dosage: DAY 10 POST CYCLE 1 OF R-CVP CHEMOTHERAPY
     Route: 042
     Dates: start: 20220125, end: 20220125
  8. VINCRISTINE [Suspect]
     Active Substance: VINCRISTINE
     Indication: Splenic marginal zone lymphoma

REACTIONS (2)
  - Atrial flutter [Recovering/Resolving]
  - Off label use [Unknown]

NARRATIVE: CASE EVENT DATE: 20220203
